FAERS Safety Report 22275934 (Version 1)
Quarter: 2023Q2

REPORT INFORMATION
  Report Type: Spontaneous
  Country: US (occurrence: US)
  Receive Date: 20230502
  Receipt Date: 20230502
  Transmission Date: 20230721
  Serious: Yes (Other)
  Sender: FDA-Public Use
  Company Number: US-GILEAD-2023-0626029

PATIENT
  Age: 77 Year
  Sex: Male
  Weight: 119.6 kg

DRUGS (2)
  1. TECARTUS [Suspect]
     Active Substance: BREXUCABTAGENE AUTOLEUCEL
     Indication: Non-Hodgkin^s lymphoma
     Dosage: INFUSION
     Route: 065
     Dates: start: 20221208, end: 20221208
  2. TECARTUS [Suspect]
     Active Substance: BREXUCABTAGENE AUTOLEUCEL
     Indication: Diffuse large B-cell lymphoma

REACTIONS (26)
  - Ileus [Unknown]
  - Azotaemia [Unknown]
  - Hyperbilirubinaemia [Unknown]
  - Acute kidney injury [Unknown]
  - Immune effector cell-associated neurotoxicity syndrome [Unknown]
  - Cytokine release syndrome [Unknown]
  - Pulmonary oedema [Unknown]
  - Hyponatraemia [Unknown]
  - Fatigue [Unknown]
  - Myalgia [Unknown]
  - Tremor [Unknown]
  - Hyponatraemia [Unknown]
  - Aspartate aminotransferase increased [Unknown]
  - Incontinence [Unknown]
  - Tremor [Unknown]
  - Diarrhoea [Unknown]
  - Tachypnoea [Unknown]
  - Hypotension [Unknown]
  - Hypoalbuminaemia [Unknown]
  - Agitation [Unknown]
  - Confusional state [Unknown]
  - Memory impairment [Unknown]
  - Dysphagia [Unknown]
  - Somnolence [Unknown]
  - Aphasia [Unknown]
  - Alanine aminotransferase increased [Unknown]

NARRATIVE: CASE EVENT DATE: 20221213
